FAERS Safety Report 17202233 (Version 5)
Quarter: 2020Q1

REPORT INFORMATION
  Report Type: Spontaneous
  Country: US (occurrence: US)
  Receive Date: 20191226
  Receipt Date: 20200204
  Transmission Date: 20200409
  Serious: Yes (Other)
  Sender: FDA-Public Use
  Company Number: US-PFIZER INC-2019548051

PATIENT
  Age: 67 Year
  Sex: Female
  Weight: 72.57 kg

DRUGS (4)
  1. ESTRING [Suspect]
     Active Substance: ESTRADIOL
     Indication: ATROPHIC VULVOVAGINITIS
     Dosage: UNK
     Route: 067
     Dates: start: 201207
  2. ESTRING [Suspect]
     Active Substance: ESTRADIOL
     Dosage: 2 MG, UNK
     Route: 067
     Dates: start: 20191214, end: 20191218
  3. ESTRING [Suspect]
     Active Substance: ESTRADIOL
     Indication: VULVOVAGINAL DRYNESS
     Dosage: UNK
     Route: 067
  4. LOSARTAN. [Concomitant]
     Active Substance: LOSARTAN
     Indication: HYPERTENSION
     Dosage: 25 MG, UNK
     Route: 048

REACTIONS (7)
  - Migraine with aura [Recovered/Resolved]
  - Visual impairment [Recovered/Resolved]
  - Headache [Recovered/Resolved]
  - Product complaint [Unknown]
  - Balance disorder [Unknown]
  - Vision blurred [Recovered/Resolved]
  - Incorrect dose administered by product [Unknown]

NARRATIVE: CASE EVENT DATE: 201912
